FAERS Safety Report 9412017 (Version 3)
Quarter: 2014Q1

REPORT INFORMATION
  Report Type: Report from Study
  Country: JP (occurrence: JP)
  Receive Date: 20130722
  Receipt Date: 20140313
  Transmission Date: 20141002
  Serious: Yes (Other)
  Sender: FDA-Public Use
  Company Number: JP-JNJFOC-20130708914

PATIENT
  Age: 52 Year
  Sex: Male
  Weight: 91 kg

DRUGS (39)
  1. STELARA [Suspect]
     Indication: PSORIASIS
     Route: 058
     Dates: start: 20120614, end: 20120614
  2. STELARA [Suspect]
     Indication: PSORIASIS
     Route: 058
     Dates: start: 20120913, end: 20120913
  3. STELARA [Suspect]
     Indication: PSORIASIS
     Route: 058
     Dates: start: 20121129, end: 20121129
  4. STELARA [Suspect]
     Indication: PSORIASIS
     Route: 058
     Dates: start: 20130221, end: 20130221
  5. STELARA [Suspect]
     Indication: PSORIASIS
     Route: 058
     Dates: start: 20120517, end: 20120517
  6. STELARA [Suspect]
     Indication: PSORIASIS
     Route: 058
     Dates: start: 20130516
  7. TENORMIN [Concomitant]
     Indication: HYPERTENSION
     Route: 048
  8. SAHNE [Concomitant]
     Indication: PSORIASIS
     Route: 061
  9. METHADERM [Concomitant]
     Indication: PSORIASIS
     Route: 061
  10. BONALFA [Concomitant]
     Indication: PSORIASIS
     Route: 061
  11. AMLODIPINE [Concomitant]
     Indication: HYPERTENSION
     Route: 048
  12. BEZATOL [Concomitant]
     Indication: HYPERLIPIDAEMIA
     Route: 048
  13. MAGMITT [Concomitant]
     Indication: CONSTIPATION
     Route: 048
     Dates: end: 20130220
  14. MAGMITT [Concomitant]
     Indication: CONSTIPATION
     Route: 048
     Dates: start: 20130221
  15. SELBEX [Concomitant]
     Indication: PROPHYLAXIS
     Route: 048
  16. FAMOGAST [Concomitant]
     Indication: PROPHYLAXIS
     Route: 048
  17. PURSENNID [Concomitant]
     Indication: CONSTIPATION
     Route: 048
     Dates: start: 20120614, end: 20130220
  18. METFORMIN HYDROCHLORIDE [Concomitant]
     Indication: DIABETES MELLITUS
     Route: 048
     Dates: end: 20120711
  19. METFORMIN HYDROCHLORIDE [Concomitant]
     Indication: DIABETES MELLITUS
     Route: 048
     Dates: start: 20121115
  20. METFORMIN HYDROCHLORIDE [Concomitant]
     Indication: DIABETES MELLITUS
     Route: 048
     Dates: start: 20120927, end: 20121114
  21. JANUVIA [Concomitant]
     Indication: DIABETES MELLITUS
     Route: 048
     Dates: start: 20120712, end: 20121114
  22. JANUVIA [Concomitant]
     Indication: DIABETES MELLITUS
     Route: 048
     Dates: start: 20121115, end: 20130516
  23. HEPARINOID [Concomitant]
     Indication: PSORIASIS
     Route: 061
     Dates: start: 20121129, end: 20130404
  24. HEPARINOID [Concomitant]
     Indication: PSORIASIS
     Route: 061
     Dates: start: 20120216, end: 201203
  25. EPINASTINE HYDROCHLORIDE [Concomitant]
     Indication: PSORIASIS
     Route: 048
     Dates: start: 20121129, end: 20130404
  26. RESLIN [Concomitant]
     Indication: DEPRESSION
     Dates: end: 201207
  27. SOLANAX [Concomitant]
     Indication: DEPRESSION
     Route: 048
  28. LEVOMEPROMAZINE MALEATE [Concomitant]
     Indication: DEPRESSION
     Route: 048
     Dates: end: 201207
  29. PYRETHIA [Concomitant]
     Indication: PROPHYLAXIS
     Route: 048
     Dates: end: 201207
  30. GASMOTIN [Concomitant]
     Indication: PROPHYLAXIS
     Route: 048
     Dates: start: 201207, end: 20130122
  31. GASMOTIN [Concomitant]
     Indication: PROPHYLAXIS
     Route: 048
     Dates: end: 201207
  32. CYMBALTA [Concomitant]
     Route: 048
     Dates: end: 201207
  33. FLUNITRAZEPAM [Concomitant]
     Indication: DEPRESSION
     Route: 048
     Dates: end: 201207
  34. FLUNITRAZEPAM [Concomitant]
     Indication: DEPRESSION
     Route: 048
     Dates: start: 201207
  35. ZYPREXA [Concomitant]
     Indication: DEPRESSION
     Route: 048
     Dates: start: 201207, end: 20121201
  36. SULPIRIDE [Concomitant]
     Indication: DEPRESSION
     Route: 048
     Dates: start: 201207, end: 20130122
  37. SEROQUEL [Concomitant]
     Indication: DEPRESSION
     Route: 048
     Dates: start: 201207, end: 20121201
  38. LULLAN [Concomitant]
     Indication: DEPRESSION
     Route: 048
     Dates: start: 20121226
  39. HALRACK [Concomitant]
     Route: 048
     Dates: start: 20130305

REACTIONS (1)
  - Large intestine polyp [Recovered/Resolved]
